FAERS Safety Report 23675143 (Version 2)
Quarter: 2024Q2

REPORT INFORMATION
  Report Type: Spontaneous
  Country: US (occurrence: US)
  Receive Date: 20240326
  Receipt Date: 20240403
  Transmission Date: 20240716
  Serious: Yes (Other)
  Sender: FDA-Public Use
  Company Number: US-AMGEN-USASP2024059120

PATIENT
  Sex: Female

DRUGS (1)
  1. REPATHA [Suspect]
     Active Substance: EVOLOCUMAB
     Indication: Product used for unknown indication
     Dosage: 140 MILLIGRAM
     Route: 065
     Dates: end: 2024

REACTIONS (3)
  - Urinary retention [Recovered/Resolved]
  - Bladder pain [Recovered/Resolved]
  - Bladder disorder [Recovered/Resolved]

NARRATIVE: CASE EVENT DATE: 20240301
